FAERS Safety Report 8476201-2 (Version None)
Quarter: 2012Q2

REPORT INFORMATION
  Report Type: 
  Country: None (occurrence: None)
  Receive Date: 20120628
  Receipt Date: 20120625
  Transmission Date: 20120825
  Serious: Yes (Life-Threatening, Hospitalization)
  Sender: FDA-Public Use
  Company Number: US-PFIZER INC-K201000758

PATIENT
  Age: 77 Year
  Sex: Male

DRUGS (4)
  1. EMBEDA [Suspect]
     Indication: PAIN
     Dosage: 150 MG, SINGLE
     Dates: start: 20100601
  2. EMBEDA [Suspect]
     Dosage: 50 MG AM AND 30 MG PM
  3. EMBEDA [Suspect]
     Dosage: 40 MG, 2X/DAY
  4. EMBEDA [Suspect]
     Dosage: 20 MG, 2X/DAY

REACTIONS (3)
  - UNRESPONSIVE TO STIMULI [None]
  - PNEUMONIA [None]
  - OVERDOSE [None]
